FAERS Safety Report 8564507-8 (Version None)
Quarter: 2012Q3

REPORT INFORMATION
  Report Type: 
  Country: None (occurrence: None)
  Receive Date: 20120803
  Receipt Date: 20120726
  Transmission Date: 20120928
  Serious: Yes (Other)
  Sender: FDA-Public Use
  Company Number: US-JNJFOC-20120800293

PATIENT
  Sex: Female

DRUGS (6)
  1. REMICADE [Suspect]
     Indication: COLITIS ULCERATIVE
     Route: 042
     Dates: start: 20120401
  2. REMICADE [Suspect]
     Route: 042
     Dates: start: 20080101, end: 20110101
  3. STEROIDS NOS [Concomitant]
     Indication: PREMEDICATION
     Dates: start: 20120401
  4. PREDNISONE [Concomitant]
     Indication: PREMEDICATION
     Dates: start: 20120401
  5. REMICADE [Suspect]
     Route: 042
     Dates: start: 20110801, end: 20111001
  6. REMICADE [Suspect]
     Route: 042
     Dates: start: 20120501, end: 20120101

REACTIONS (14)
  - INSOMNIA [None]
  - BONE LOSS [None]
  - PROCTITIS ULCERATIVE [None]
  - PARAESTHESIA [None]
  - LIP SWELLING [None]
  - PRURITUS [None]
  - BURNING SENSATION [None]
  - PHARYNGEAL OEDEMA [None]
  - HYPERSENSITIVITY [None]
  - PAIN IN JAW [None]
  - URTICARIA [None]
  - PERIODONTAL DISEASE [None]
  - MOUTH CYST [None]
  - MUSCULOSKELETAL PAIN [None]
